FAERS Safety Report 18777853 (Version 1)
Quarter: 2021Q1

REPORT INFORMATION
  Report Type: Spontaneous
  Country: US (occurrence: US)
  Receive Date: 20210122
  Receipt Date: 20210122
  Transmission Date: 20210419
  Serious: No
  Sender: FDA-Public Use
  Company Number: 2020SGN04200

PATIENT
  Age: 70 Year
  Sex: Female

DRUGS (3)
  1. CAPECITABINE. [Suspect]
     Active Substance: CAPECITABINE
     Dosage: 1000 MG, BID
     Dates: start: 202010
  2. TUKYSA [Suspect]
     Active Substance: TUCATINIB
     Indication: BREAST CANCER FEMALE
     Dosage: UNK
     Route: 065
     Dates: end: 20200815
  3. CAPECITABINE. [Suspect]
     Active Substance: CAPECITABINE
     Indication: BREAST CANCER FEMALE
     Dosage: UNK

REACTIONS (12)
  - Malaise [Unknown]
  - Adverse drug reaction [Unknown]
  - Ageusia [Unknown]
  - Coeliac disease [Unknown]
  - Abdominal distension [Unknown]
  - Laboratory test abnormal [Unknown]
  - Dyspepsia [Unknown]
  - Fatigue [Unknown]
  - Hypersomnia [Unknown]
  - Diarrhoea [Unknown]
  - Product dose omission issue [Unknown]
  - Nausea [Unknown]

NARRATIVE: CASE EVENT DATE: 20200815
